FAERS Safety Report 5379925-9 (Version None)
Quarter: 2007Q3

REPORT INFORMATION
  Report Type: 
  Country: None (occurrence: None)
  Receive Date: 20070706
  Receipt Date: 20070628
  Transmission Date: 20080115
  Serious: Yes (Other)
  Sender: FDA-Public Use
  Company Number: US-JNJFOC-20070700021

PATIENT
  Sex: Female
  Weight: 90.72 kg

DRUGS (7)
  1. DOXIL [Suspect]
     Indication: ENDOMETRIAL CANCER RECURRENT
     Route: 042
  2. OXYCODONE HCL [Concomitant]
     Route: 065
  3. OXYCODONE HCL [Concomitant]
     Dosage: FOR BREAK THROUGH PAIN
     Route: 065
  4. OXYCODONE HCL [Concomitant]
     Indication: PAIN
     Route: 065
  5. WELLBUTLIN [Concomitant]
     Route: 065
  6. LISINOPRIL [Concomitant]
     Indication: ESSENTIAL HYPERTENSION
     Route: 065
  7. VITAMIN [Concomitant]
     Route: 065

REACTIONS (3)
  - DYSPHAGIA [None]
  - DYSPHONIA [None]
  - URTICARIA [None]
